FAERS Safety Report 4996166-5 (Version None)
Quarter: 2006Q2

REPORT INFORMATION
  Report Type: 
  Country: None (occurrence: None)
  Receive Date: 20060504
  Receipt Date: 20060428
  Transmission Date: 20061013
  Serious: Yes (Death, Life-Threatening, Hospitalization)
  Sender: FDA-Public Use
  Company Number: 2006-00696

PATIENT
  Age: 58 Year
  Sex: Female
  Weight: 43.001 kg

DRUGS (15)
  1. VELCADE [Suspect]
     Indication: MULTIPLE MYELOMA
     Dosage: 1.30 MG/M2 INTRAVENOUS
     Route: 042
     Dates: start: 20060113, end: 20060320
  2. DOXIL/CAELYX    (DOXORUBICIN HYDROCHLORIDE) INJECTION [Suspect]
     Indication: MULTIPLE MYELOMA
     Dosage: 30.00 MG /M2 INTRAVENOUS
     Route: 042
     Dates: start: 20060116, end: 20060313
  3. KYTRIL [Concomitant]
  4. MAXOLON [Concomitant]
  5. LASIX [Concomitant]
  6. AREDIA [Concomitant]
  7. AUGMENTIN (CLAVULANATE POTSSIUM, AMOXICILLIN TRIHYDRATE) [Concomitant]
  8. CLARITHROMYCIN [Concomitant]
  9. ACYCLOVIR [Concomitant]
  10. TRAMADOL HCL [Concomitant]
  11. ANAREX (PARACETAMOL, ORPHENADRINE) [Concomitant]
  12. GABAPENTIN [Concomitant]
  13. CHLORHEXIDINE (CHLORHEXIDINE) [Concomitant]
  14. NYSTATIN [Concomitant]
  15. SODIUM CHLORIDE [Concomitant]

REACTIONS (24)
  - CEREBRAL INFARCTION [None]
  - CEREBRAL ISCHAEMIA [None]
  - COMA [None]
  - CONVULSION [None]
  - DEVICE RELATED INFECTION [None]
  - DIALYSIS [None]
  - DIFFICULT TO WEAN FROM VENTILATOR [None]
  - HAEMODIALYSIS [None]
  - LOSS OF CONSCIOUSNESS [None]
  - MENTAL STATUS CHANGES [None]
  - MULTI-ORGAN FAILURE [None]
  - MYOCARDIAL ISCHAEMIA [None]
  - NEUTROPENIC SEPSIS [None]
  - NEUTROPHIL PERCENTAGE INCREASED [None]
  - PNEUMONIA [None]
  - RENAL FAILURE ACUTE [None]
  - RHABDOMYOLYSIS [None]
  - SEPTIC EMBOLUS [None]
  - SEPTIC SHOCK [None]
  - STAPHYLOCOCCAL INFECTION [None]
  - TACHYPNOEA [None]
  - THERAPY NON-RESPONDER [None]
  - TROPONIN T INCREASED [None]
  - WHITE BLOOD CELL COUNT DECREASED [None]
